FAERS Safety Report 12854334 (Version 1)
Quarter: 2016Q4

REPORT INFORMATION
  Report Type: Report from Study
  Country: BR (occurrence: BR)
  Receive Date: 20161017
  Receipt Date: 20161017
  Transmission Date: 20170207
  Serious: Yes (Hospitalization, Other)
  Sender: FDA-Public Use
  Company Number: PHHY2016BR140076

PATIENT
  Sex: Female
  Weight: 67 kg

DRUGS (1)
  1. SANDOSTATIN LAR DEPOT [Suspect]
     Active Substance: OCTREOTIDE ACETATE
     Indication: ACROMEGALY
     Dosage: 20 MG, QMO (ONCE A MONTH)
     Route: 065

REACTIONS (10)
  - Phobia [Unknown]
  - Pituitary tumour recurrent [Unknown]
  - Dysphonia [Unknown]
  - Memory impairment [Unknown]
  - Product use issue [Unknown]
  - Injury [Unknown]
  - Swelling [Unknown]
  - Peripheral swelling [Unknown]
  - Headache [Unknown]
  - Asthenia [Unknown]
